FAERS Safety Report 22981962 (Version 2)
Quarter: 2023Q4

REPORT INFORMATION
  Report Type: Other
  Country: SA (occurrence: SA)
  Receive Date: 20230926
  Receipt Date: 20231009
  Transmission Date: 20240110
  Serious: Yes (Death, Hospitalization)
  Sender: FDA-Public Use
  Company Number: SA-ALVOGEN-2023092302

PATIENT
  Age: 60 Year
  Sex: Female

DRUGS (1)
  1. LENALIDOMIDE [Suspect]
     Active Substance: LENALIDOMIDE
     Indication: Plasma cell myeloma
     Dosage: EVERY OTHER DAY AS PALLIATIVE TREATMENT.

REACTIONS (2)
  - Diffuse alveolar damage [Fatal]
  - Acute respiratory failure [Fatal]
